FAERS Safety Report 7845514-7 (Version None)
Quarter: 2011Q4

REPORT INFORMATION
  Report Type: 
  Country: None (occurrence: None)
  Receive Date: 20111025
  Receipt Date: 20111012
  Transmission Date: 20120403
  Serious: Yes (Hospitalization, Disabling)
  Sender: FDA-Public Use
  Company Number: DE-MYLANLABS-2011S1021193

PATIENT
  Age: 77 Year
  Sex: Female
  Weight: 64 kg

DRUGS (4)
  1. CITALOPRAM HYDROBROMIDE [Suspect]
     Route: 048
     Dates: start: 20090501, end: 20090901
  2. CITALOPRAM HYDROBROMIDE [Suspect]
     Indication: DEPRESSION
     Dosage: DAILY DOSE: 20 MG MILLGRAM(S) EVERY DAYS
     Route: 048
     Dates: start: 20080301, end: 20090501
  3. CITALOPRAM HYDROBROMIDE [Suspect]
     Route: 048
     Dates: start: 20091201, end: 20100301
  4. CITALOPRAM HYDROBROMIDE [Suspect]
     Route: 048
     Dates: start: 20100301, end: 20110401

REACTIONS (3)
  - FEMUR FRACTURE [None]
  - THORACIC VERTEBRAL FRACTURE [None]
  - PELVIC FRACTURE [None]
